FAERS Safety Report 4874613-7 (Version None)
Quarter: 2006Q1

REPORT INFORMATION
  Report Type: 
  Country: None (occurrence: None)
  Receive Date: 20060106
  Receipt Date: 20041228
  Transmission Date: 20060701
  Serious: Yes (Hospitalization, Other)
  Sender: FDA-Public Use
  Company Number: US-MERCK-0412USA03190

PATIENT
  Age: 63 Year
  Sex: Male
  Weight: 99 kg

DRUGS (3)
  1. VIOXX [Suspect]
     Indication: NECK PAIN
     Route: 048
     Dates: end: 20030101
  2. VIOXX [Suspect]
     Indication: BONE PAIN
     Route: 048
     Dates: end: 20030101
  3. EXTRA STRENGTH TYLENOL [Concomitant]
     Route: 065

REACTIONS (4)
  - CARDIAC DISORDER [None]
  - CARDIAC FAILURE [None]
  - HEART TRANSPLANT [None]
  - MYOCARDIAL INFARCTION [None]
